FAERS Safety Report 6273813-1 (Version None)
Quarter: 2009Q3

REPORT INFORMATION
  Report Type: 
  Country: None (occurrence: None)
  Receive Date: 20090715
  Receipt Date: 20090629
  Transmission Date: 20100115
  Serious: Yes (Hospitalization)
  Sender: FDA-Public Use
  Company Number: DSA_33944_2009

PATIENT
  Age: 62 Year
  Sex: Female

DRUGS (6)
  1. ENALAPRIL MALEATE [Suspect]
     Indication: ESSENTIAL HYPERTENSION
     Dosage: DF ORAL
     Route: 048
     Dates: end: 20090429
  2. CITODON /00116401/ [Concomitant]
  3. ASPIRIN [Concomitant]
  4. DOXYCYCLINE [Concomitant]
  5. IMDUR [Concomitant]
  6. SIMVASTATIN [Concomitant]

REACTIONS (6)
  - ANGIOEDEMA [None]
  - DYSPHAGIA [None]
  - DYSPNOEA [None]
  - OEDEMA MOUTH [None]
  - PHARYNGEAL OEDEMA [None]
  - TONGUE OEDEMA [None]
